FAERS Safety Report 16449146 (Version 1)
Quarter: 2019Q2

REPORT INFORMATION
  Report Type: Report from Study
  Country: ES (occurrence: ES)
  Receive Date: 20190619
  Receipt Date: 20190619
  Transmission Date: 20190711
  Serious: Yes (Hospitalization)
  Sender: FDA-Public Use
  Company Number: ES-TEVA-2019-ES-1065016

PATIENT
  Age: 32 Year
  Sex: Female

DRUGS (3)
  1. FLUOROCITOSINA [Suspect]
     Active Substance: FLUCYTOSINE
     Indication: MENINGITIS CRYPTOCOCCAL
     Dosage: 2000 MG DIA
     Route: 042
     Dates: start: 20170422, end: 20170524
  2. ATAZANAVIR (2923A) [Suspect]
     Active Substance: ATAZANAVIR
     Indication: HIV INFECTION CDC CATEGORY C
     Dosage: 300 MG PRICE
     Route: 048
     Dates: start: 20170522, end: 20170524
  3. AMBISOME [Suspect]
     Active Substance: AMPHOTERICIN B
     Indication: MENINGITIS CRYPTOCOCCAL
     Dosage: 300 MG DIA
     Route: 042
     Dates: start: 20170422, end: 20170524

REACTIONS (1)
  - Hepatitis [Recovered/Resolved]

NARRATIVE: CASE EVENT DATE: 20170524
